FAERS Safety Report 12171742 (Version 1)
Quarter: 2016Q1

REPORT INFORMATION
  Report Type: Spontaneous
  Country: DK (occurrence: DE)
  Receive Date: 20160311
  Receipt Date: 20160311
  Transmission Date: 20160526
  Serious: Yes (Congenital Anomaly)
  Sender: FDA-Public Use
  Company Number: DE-FRI-1000083086

PATIENT
  Age: 1 Day
  Sex: Female
  Weight: 3.6 kg

DRUGS (6)
  1. FOLIO FORTE [Concomitant]
     Active Substance: FOLIC ACID\VITAMINS
     Indication: PROPHYLAXIS OF NEURAL TUBE DEFECT
     Dosage: 0.8 MG
     Route: 064
     Dates: start: 20141214, end: 20150915
  2. LASEA [Concomitant]
     Indication: SELF-MEDICATION
     Dosage: 80 MG
     Route: 064
  3. IBUPROFEN. [Concomitant]
     Active Substance: IBUPROFEN
     Indication: HEADACHE
     Route: 064
  4. CITALOPRAM [Suspect]
     Active Substance: CITALOPRAM HYDROBROMIDE
     Indication: DEPRESSION
     Dosage: 20 MG
     Route: 064
     Dates: start: 20141214
  5. CITALOPRAM [Suspect]
     Active Substance: CITALOPRAM HYDROBROMIDE
     Dosage: 10 MG
     Route: 064
     Dates: end: 20150915
  6. TAVOR (LORAZEPAM) [Concomitant]
     Active Substance: LORAZEPAM
     Indication: PANIC ATTACK
     Route: 064

REACTIONS (4)
  - Right aortic arch [Not Recovered/Not Resolved]
  - Foetal exposure during pregnancy [Recovered/Resolved]
  - Atrial septal defect [Not Recovered/Not Resolved]
  - Haemangioma [Not Recovered/Not Resolved]

NARRATIVE: CASE EVENT DATE: 20150915
